FAERS Safety Report 8189252-2 (Version None)
Quarter: 2012Q1

REPORT INFORMATION
  Report Type: 
  Country: None (occurrence: None)
  Receive Date: 20120307
  Receipt Date: 20120224
  Transmission Date: 20120608
  Serious: Yes (Hospitalization)
  Sender: FDA-Public Use
  Company Number: US-ELI_LILLY_AND_COMPANY-US201105001331

PATIENT
  Sex: Female
  Weight: 64.853 kg

DRUGS (13)
  1. FORTEO [Suspect]
     Indication: OSTEOPOROSIS
     Dosage: 20 UG, QD
     Route: 065
     Dates: start: 20100901, end: 20110404
  2. LOSARTAN POTASSIUM AND HYDROCHLOROTHIAZIDE [Concomitant]
     Dosage: 62.5 MG, UNK
  3. FORTEO [Suspect]
     Dosage: 20 UG, QD
     Route: 065
     Dates: start: 20110418
  4. FORTEO [Suspect]
     Dosage: 20 UG, QD
  5. LEXAPRO [Concomitant]
     Indication: ANXIETY
  6. PRADAXA [Concomitant]
     Dosage: 110 DF, BID
  7. METPROLOL [Concomitant]
     Dosage: 100 DF, BID
  8. FORTEO [Suspect]
     Dosage: UNK
  9. FORTEO [Suspect]
     Dosage: 20 UG, QD
     Route: 065
  10. FORTEO [Suspect]
     Dosage: 20 UG, QD
  11. FORTEO [Suspect]
     Dosage: 20 UG, QD
  12. FORTEO [Suspect]
     Dosage: 20 UG, QD
  13. DILTIAZEM HCL [Concomitant]
     Dosage: 360 MG, QD

REACTIONS (12)
  - INJURY [None]
  - CARDIAC DISORDER [None]
  - ATRIAL FIBRILLATION [None]
  - BRONCHITIS [None]
  - ARTHROPATHY [None]
  - BACK DISORDER [None]
  - GAIT DISTURBANCE [None]
  - TINNITUS [None]
  - OEDEMA PERIPHERAL [None]
  - PAIN IN EXTREMITY [None]
  - ROAD TRAFFIC ACCIDENT [None]
  - BONE DISORDER [None]
